FAERS Safety Report 21975450 (Version 3)
Quarter: 2023Q1

REPORT INFORMATION
  Report Type: Other
  Country: US (occurrence: US)
  Receive Date: 20230210
  Receipt Date: 20230323
  Transmission Date: 20230418
  Serious: Yes (Other)
  Sender: FDA-Public Use
  Company Number: US-INTERCEPT-PM2023000208

PATIENT
  Age: 59 Year
  Sex: Female
  Weight: 57.596 kg

DRUGS (12)
  1. OCALIVA [Suspect]
     Active Substance: OBETICHOLIC ACID
     Indication: Primary biliary cholangitis
     Dosage: 5 MILLIGRAM, QD
     Route: 048
     Dates: start: 202103, end: 2022
  2. OCALIVA [Suspect]
     Active Substance: OBETICHOLIC ACID
     Dosage: UNK
     Route: 048
     Dates: start: 202301
  3. URSODIOL [Concomitant]
     Active Substance: URSODIOL
  4. OMEPRAZOLE [Concomitant]
     Active Substance: OMEPRAZOLE
  5. VISTARIL [Concomitant]
     Active Substance: HYDROXYZINE PAMOATE
  6. BUSPIRONE HCL [Concomitant]
     Active Substance: BUSPIRONE HYDROCHLORIDE
  7. OXYCODONE HYDROCHLORIDE [Concomitant]
     Active Substance: OXYCODONE HYDROCHLORIDE
  8. TIZANIDINE HYDROCHLORIDE [Concomitant]
     Active Substance: TIZANIDINE HYDROCHLORIDE
  9. EFFEXOR XR [Concomitant]
     Active Substance: VENLAFAXINE HYDROCHLORIDE
  10. VITAMIN B12 [Concomitant]
     Active Substance: CYANOCOBALAMIN
  11. CHOLECALCIFEROL [Concomitant]
     Active Substance: CHOLECALCIFEROL
  12. PRENATAL 19 [Concomitant]
     Active Substance: .ALPHA.-TOCOPHEROL ACETATE, DL-\.BETA.-CAROTENE\ASCORBIC ACID\CALCIUM CARBONATE\CALCIUM PANTOTHENATE
     Dosage: 29-1-25 MILLIGRAM

REACTIONS (5)
  - Oesophageal stenosis [Not Recovered/Not Resolved]
  - Oesophageal dilation procedure [Recovered/Resolved]
  - Blood alkaline phosphatase abnormal [Recovered/Resolved]
  - Pruritus [Unknown]
  - Fatigue [Unknown]

NARRATIVE: CASE EVENT DATE: 20210601
